FAERS Safety Report 9490366 (Version 3)
Quarter: 2013Q3

REPORT INFORMATION
  Report Type: Spontaneous
  Country: FR (occurrence: FR)
  Receive Date: 20130830
  Receipt Date: 20130911
  Transmission Date: 20140515
  Serious: Yes (Hospitalization, Other)
  Sender: FDA-Public Use
  Company Number: FR-ROCHE-1266641

PATIENT
  Age: 80 Year
  Sex: Male
  Weight: 58 kg

DRUGS (7)
  1. ZELBORAF [Suspect]
     Indication: METASTATIC MALIGNANT MELANOMA
     Dosage: 240 MG
     Route: 048
     Dates: start: 20130808, end: 20130831
  2. ZELBORAF [Suspect]
     Dosage: 240 MG
     Route: 048
     Dates: start: 20130902
  3. INIPOMP [Concomitant]
     Dosage: 20 MG
     Route: 048
  4. KARDEGIC [Concomitant]
     Indication: PERIPHERAL ARTERIAL OCCLUSIVE DISEASE
     Dosage: 160 MG
     Route: 048
  5. INEGY [Concomitant]
     Indication: PERIPHERAL ARTERIAL OCCLUSIVE DISEASE
     Dosage: 10
     Route: 048
  6. EUPRESSYL [Concomitant]
     Indication: HYPERTENSION
     Dosage: 60
     Route: 048
  7. COAPROVEL [Concomitant]
     Indication: HYPERTENSION
     Route: 048

REACTIONS (6)
  - Rash [Recovered/Resolved]
  - Pyrexia [Not Recovered/Not Resolved]
  - Inflammation [Recovering/Resolving]
  - Back pain [Recovered/Resolved]
  - Renal failure [Recovered/Resolved]
  - Anaemia [Not Recovered/Not Resolved]
